FAERS Safety Report 4586380-5 (Version None)
Quarter: 2005Q1

REPORT INFORMATION
  Report Type: 
  Country: None (occurrence: None)
  Receive Date: 20050125
  Receipt Date: 20040908
  Transmission Date: 20050727
  Serious: No
  Sender: FDA-Public Use
  Company Number: USA040977752

PATIENT
  Age: 53 Year
  Sex: Female

DRUGS (4)
  1. FORTEO [Suspect]
     Indication: OSTEOPOROSIS
     Dates: start: 20040826, end: 20040831
  2. CELEBREX [Concomitant]
  3. ZOLOFT [Concomitant]
  4. AMITRIPTYLINE HCL [Concomitant]

REACTIONS (6)
  - ANGINA PECTORIS [None]
  - CHEST PAIN [None]
  - DIZZINESS [None]
  - FATIGUE [None]
  - NAUSEA [None]
  - THINKING ABNORMAL [None]
